FAERS Safety Report 4658834-4 (Version None)
Quarter: 2005Q2

REPORT INFORMATION
  Report Type: 
  Country: None (occurrence: None)
  Receive Date: 20050511
  Receipt Date: 20050502
  Transmission Date: 20051028
  Serious: Yes (Hospitalization)
  Sender: FDA-Public Use
  Company Number: JP-ROCHE-404104

PATIENT
  Age: 41 Year
  Sex: Male

DRUGS (6)
  1. TAMIFLU [Suspect]
     Indication: INFLUENZA
     Route: 048
     Dates: start: 20050310, end: 20050310
  2. TAMIFLU [Suspect]
     Route: 048
     Dates: start: 20050305, end: 20050307
  3. FLOMOX [Suspect]
     Indication: INFLUENZA
     Route: 048
     Dates: start: 20050310, end: 20050310
  4. FLOMOX [Suspect]
     Route: 048
     Dates: start: 20050305, end: 20050307
  5. LOXONIN [Suspect]
     Indication: INFLUENZA
     Route: 048
     Dates: start: 20050310, end: 20050310
  6. LOXONIN [Suspect]
     Route: 048
     Dates: start: 20050305, end: 20050307

REACTIONS (1)
  - ANAPHYLACTIC SHOCK [None]
